FAERS Safety Report 15347522 (Version 1)
Quarter: 2018Q3

REPORT INFORMATION
  Report Type: Report from Study
  Country: TN (occurrence: TN)
  Receive Date: 20180904
  Receipt Date: 20180904
  Transmission Date: 20181010
  Serious: Yes (Death)
  Sender: FDA-Public Use
  Company Number: TN-SANIK-2018SA239825AA

PATIENT
  Age: 62 Year
  Sex: Male

DRUGS (6)
  1. ASPEGIC [ACETYLSALICYLIC ACID] [Concomitant]
  2. CINCOR [Concomitant]
  3. STATINOR [Concomitant]
  4. ALDACTONE [Concomitant]
     Active Substance: SPIRONOLACTONE
  5. CLOPIDOGREL BISULFATE. [Suspect]
     Active Substance: CLOPIDOGREL BISULFATE
     Dosage: 75 MG, QD
     Route: 048
     Dates: start: 20170817, end: 20180520
  6. LOPRIL [LISINOPRIL] [Concomitant]

REACTIONS (1)
  - Cardiac arrest [Fatal]

NARRATIVE: CASE EVENT DATE: 20180520
